FAERS Safety Report 6719615-0 (Version None)
Quarter: 2010Q2

REPORT INFORMATION
  Report Type: 
  Country: None (occurrence: None)
  Receive Date: 20100511
  Receipt Date: 20100427
  Transmission Date: 20101027
  Serious: Yes (Other)
  Sender: FDA-Public Use
  Company Number: US-CELGENEUS-163-21880-10042573

PATIENT
  Sex: Male

DRUGS (2)
  1. REVLIMID [Suspect]
     Indication: MULTIPLE MYELOMA
     Route: 048
     Dates: start: 20091101
  2. REVLIMID [Suspect]
     Dosage: 25-15MG
     Route: 048
     Dates: start: 20060801

REACTIONS (1)
  - CORONARY ARTERY OCCLUSION [None]
